FAERS Safety Report 9315251 (Version 5)
Quarter: 2014Q4

REPORT INFORMATION
  Report Type: Report from Study
  Country: IT (occurrence: IT)
  Receive Date: 20130529
  Receipt Date: 20141009
  Transmission Date: 20150529
  Serious: Yes (Disabling)
  Sender: FDA-Public Use
  Company Number: IT-ROCHE-1226898

PATIENT
  Age: 50 Year
  Sex: Female
  Weight: 52.7 kg

DRUGS (3)
  1. CARBOPLATIN. [Suspect]
     Active Substance: CARBOPLATIN
     Indication: OVARIAN CANCER
     Dosage: LAST DOSE PRIOR TO EVENT:18/AUG/2012
     Route: 042
     Dates: start: 20120503, end: 20120818
  2. BEVACIZUMAB [Suspect]
     Active Substance: BEVACIZUMAB
     Indication: OVARIAN CANCER
     Dosage: LAST DOSE RECEIVED PRIOR TO SAE ON 29/APR/2013
     Route: 042
     Dates: start: 20120503, end: 20130516
  3. PACLITAXEL. [Suspect]
     Active Substance: PACLITAXEL
     Indication: OVARIAN CANCER
     Dosage: LAST DOSE PRIOR TO SAE: 18/AUG/2012
     Route: 042
     Dates: start: 20120503, end: 20120818

REACTIONS (2)
  - Tooth loss [Recovered/Resolved]
  - Gingivitis [Recovered/Resolved]

NARRATIVE: CASE EVENT DATE: 20130501
